FAERS Safety Report 17959374 (Version 4)
Quarter: 2021Q3

REPORT INFORMATION
  Report Type: Spontaneous
  Country: SK (occurrence: SK)
  Receive Date: 20200630
  Receipt Date: 20210915
  Transmission Date: 20211014
  Serious: Yes (Other)
  Sender: FDA-Public Use
  Company Number: SK-B.I. PHARMACEUTICALS,INC./RIDGEFIELD-2020-BI-015368

PATIENT
  Age: 76 Year
  Sex: Male

DRUGS (18)
  1. OFEV [Suspect]
     Active Substance: NINTEDANIB
     Route: 048
     Dates: end: 202009
  2. OFEV [Suspect]
     Active Substance: NINTEDANIB
     Dates: start: 202109
  3. OTEZLA [Concomitant]
     Active Substance: APREMILAST
     Indication: PSORIASIS
     Route: 065
     Dates: start: 2020
  4. OFEV [Suspect]
     Active Substance: NINTEDANIB
     Indication: INTERSTITIAL LUNG DISEASE
     Route: 048
     Dates: start: 20191114, end: 202005
  5. TAMSULOSIN [Concomitant]
     Active Substance: TAMSULOSIN
     Indication: PRODUCT USED FOR UNKNOWN INDICATION
  6. HELICID [OMEPRAZOLE] [Concomitant]
     Active Substance: OMEPRAZOLE
     Indication: PRODUCT USED FOR UNKNOWN INDICATION
  7. MILGAMMA [BENFOTIAMINE] [Concomitant]
     Active Substance: BENFOTIAMINE
     Indication: PRODUCT USED FOR UNKNOWN INDICATION
  8. ASPIRIN [ACETYLSALICYLIC ACID] [Concomitant]
     Active Substance: ASPIRIN
     Indication: PRODUCT USED FOR UNKNOWN INDICATION
  9. CORVATON [Concomitant]
     Active Substance: MOLSIDOMINE
     Indication: PRODUCT USED FOR UNKNOWN INDICATION
  10. NEOTIGASON [Concomitant]
     Active Substance: ACITRETIN
     Indication: PRODUCT USED FOR UNKNOWN INDICATION
  11. OFEV [Suspect]
     Active Substance: NINTEDANIB
     Indication: IDIOPATHIC PULMONARY FIBROSIS
     Route: 048
     Dates: start: 202006
  12. ENELBIN [NAFTIDROFURYL OXALATE] [Concomitant]
     Indication: PRODUCT USED FOR UNKNOWN INDICATION
  13. STADAMET [Concomitant]
     Active Substance: METFORMIN HYDROCHLORIDE
     Indication: PRODUCT USED FOR UNKNOWN INDICATION
  14. CONCOR [Concomitant]
     Active Substance: BISOPROLOL FUMARATE
     Indication: PRODUCT USED FOR UNKNOWN INDICATION
  15. PANTOPRAZOL [PANTOPRAZOLE] [Concomitant]
     Active Substance: PANTOPRAZOLE
     Indication: PRODUCT USED FOR UNKNOWN INDICATION
  16. OLICARD [Concomitant]
     Active Substance: ISOSORBIDE MONONITRATE
     Indication: PRODUCT USED FOR UNKNOWN INDICATION
  17. PROTEVASC [Concomitant]
     Active Substance: TRIMETAZIDINE DIHYDROCHLORIDE
     Indication: PRODUCT USED FOR UNKNOWN INDICATION
  18. OFEV [Suspect]
     Active Substance: NINTEDANIB
     Route: 048
     Dates: start: 202009

REACTIONS (5)
  - Diarrhoea infectious [Recovered/Resolved]
  - Hypertensive crisis [Recovered/Resolved]
  - Diarrhoea [Recovering/Resolving]
  - Atrial fibrillation [Unknown]
  - Diarrhoea [Recovering/Resolving]

NARRATIVE: CASE EVENT DATE: 2020
